FAERS Safety Report 4845515-7 (Version None)
Quarter: 2005Q4

REPORT INFORMATION
  Report Type: 
  Country: None (occurrence: None)
  Receive Date: 20051201
  Receipt Date: 20051114
  Transmission Date: 20060501
  Serious: Yes (Other)
  Sender: FDA-Public Use
  Company Number: US200511000656

PATIENT
  Age: 58 Year
  Sex: Female

DRUGS (6)
  1. HUMULIN L [Suspect]
     Indication: DIABETES MELLITUS
     Dates: start: 20020101
  2. HUMALOG [Suspect]
     Indication: DIABETES MELLITUS
     Dates: start: 19950101
  3. HUMALOG MIX 75/25 [Suspect]
     Indication: DIABETES MELLITUS
     Dates: start: 19950101
  4. HUMULIN 70/30 [Suspect]
     Indication: DIABETES MELLITUS
     Dates: start: 19950101
  5. HUMULIN U [Suspect]
     Indication: DIABETES MELLITUS
     Dates: start: 19950101
  6. HUMULIN N [Suspect]
     Indication: DIABETES MELLITUS
     Dates: start: 19950101

REACTIONS (4)
  - ASTHMA [None]
  - CONDITION AGGRAVATED [None]
  - HYPERSENSITIVITY [None]
  - MYOCARDIAL INFARCTION [None]
